FAERS Safety Report 6677249-0 (Version None)
Quarter: 2010Q2

REPORT INFORMATION
  Report Type: 
  Country: None (occurrence: None)
  Receive Date: 20100408
  Receipt Date: 20100401
  Transmission Date: 20101027
  Serious: Yes (Other)
  Sender: FDA-Public Use
  Company Number: 2010SP016651

PATIENT
  Age: 28 Year
  Sex: Female
  Weight: 50 kg

DRUGS (5)
  1. IMPLANON [Suspect]
     Indication: CONTRACEPTION
     Dosage: 1 DF;SC
     Route: 058
     Dates: start: 20090306, end: 20100203
  2. ZYPREXA [Concomitant]
  3. ZOLPIDEM [Concomitant]
  4. SEROPLEX [Concomitant]
  5. ALPRAZOLAM [Concomitant]

REACTIONS (1)
  - THROMBOPHLEBITIS [None]
